FAERS Safety Report 4540171-X (Version None)
Quarter: 2004Q4

REPORT INFORMATION
  Report Type: 
  Country: None (occurrence: None)
  Receive Date: 20041222
  Receipt Date: 20041215
  Transmission Date: 20050328
  Serious: Yes (Death, Hospitalization)
  Sender: FDA-Public Use
  Company Number: GBT041001724

PATIENT
  Age: 68 Year
  Sex: Male
  Weight: 76 kg

DRUGS (8)
  1. ALIMTA [Suspect]
     Indication: MESOTHELIOMA
     Dosage: 950 MG/1 OTHER
     Route: 050
     Dates: start: 20040806
  2. CARBOPLATIN [Suspect]
     Indication: MESOTHELIOMA
     Dosage: 475 MG/1 OTHER
     Route: 050
     Dates: start: 20040806
  3. FOLIC ACID [Concomitant]
  4. OXYCONTIN [Concomitant]
  5. GABAPENTIN [Concomitant]
  6. ACETAMINOPHEN [Concomitant]
  7. VITAMIN B-12 [Concomitant]
  8. DEXAMETHASONE [Concomitant]

REACTIONS (21)
  - BLOOD ALBUMIN DECREASED [None]
  - BLOOD CREATININE DECREASED [None]
  - BLOOD PRESSURE INCREASED [None]
  - BRONCHOPNEUMONIA [None]
  - C-REACTIVE PROTEIN INCREASED [None]
  - CONFUSIONAL STATE [None]
  - DEHYDRATION [None]
  - DYSPNOEA [None]
  - GLASGOW COMA SCALE ABNORMAL [None]
  - HAEMOGLOBIN DECREASED [None]
  - HEART RATE INCREASED [None]
  - HYPONATRAEMIA [None]
  - METABOLIC ENCEPHALOPATHY [None]
  - NEUTROPHIL COUNT INCREASED [None]
  - PERIPHERAL COLDNESS [None]
  - PLEURAL EFFUSION [None]
  - PROTEIN TOTAL INCREASED [None]
  - RESPIRATORY ACIDOSIS [None]
  - RESPIRATORY FAILURE [None]
  - URINARY INCONTINENCE [None]
  - URINE OUTPUT DECREASED [None]
